FAERS Safety Report 6569908-5 (Version None)
Quarter: 2010Q1

REPORT INFORMATION
  Report Type: 
  Country: None (occurrence: None)
  Receive Date: 20100204
  Receipt Date: 20100129
  Transmission Date: 20100710
  Serious: Yes (Hospitalization, Other)
  Sender: FDA-Public Use
  Company Number: PHHY2010US05054

PATIENT
  Age: 41 Year
  Sex: Male

DRUGS (1)
  1. SIMULECT [Suspect]
     Indication: IMMUNOSUPPRESSION
     Dosage: 20 MG, ONCE/SINGLE
     Route: 042
     Dates: start: 20100119

REACTIONS (7)
  - BRADYCARDIA [None]
  - CATHETERISATION CARDIAC [None]
  - CORONARY ARTERY BYPASS [None]
  - ENDOTRACHEAL INTUBATION [None]
  - MYOCARDIAL INFARCTION [None]
  - NON-CARDIOGENIC PULMONARY OEDEMA [None]
  - PYREXIA [None]
